FAERS Safety Report 6923365-5 (Version None)
Quarter: 2010Q3

REPORT INFORMATION
  Report Type: 
  Country: None (occurrence: None)
  Receive Date: 20100813
  Receipt Date: 20100802
  Transmission Date: 20110219
  Serious: Yes (Death)
  Sender: FDA-Public Use
  Company Number: CN-MERCK-1008CHN00005

PATIENT
  Age: 53 Year
  Sex: Male

DRUGS (3)
  1. CANCIDAS [Suspect]
     Indication: ASPERGILLOSIS
     Route: 051
  2. CANCIDAS [Suspect]
     Route: 051
  3. AMPHOTERICIN B [Concomitant]
     Indication: ASPERGILLOSIS
     Route: 055

REACTIONS (1)
  - BRONCHOPULMONARY ASPERGILLOSIS [None]
